FAERS Safety Report 10102087 (Version 1)
Quarter: 2014Q2

REPORT INFORMATION
  Report Type: Spontaneous
  Country: US (occurrence: None)
  Receive Date: 20140422
  Receipt Date: 20140422
  Transmission Date: 20141212
  Serious: Yes (Hospitalization)
  Sender: FDA-Public Use
  Company Number: AUR-APL-2014-04674

PATIENT
  Age: 17 Year
  Sex: Female

DRUGS (4)
  1. SERTRALINE (SERTRALINE) [Suspect]
  2. LAMOTRIGINE (LAMOTRIGINE) [Suspect]
     Indication: PRODUCT USED FOR UNKNOWN INDICATION
  3. ZIPRASIDONE HCL (ZIPRASIDONE HYDROCHLORIDE) [Suspect]
     Indication: PRODUCT USED FOR UNKNOWN INDICATION
  4. LANSOPRAZOLE (LANSOPRAZOLE) [Suspect]

REACTIONS (4)
  - Hyperprolactinaemia [None]
  - Breast discharge [None]
  - Vaginal haemorrhage [None]
  - Weight increased [None]
